FAERS Safety Report 4937412-3 (Version None)
Quarter: 2006Q1

REPORT INFORMATION
  Report Type: 
  Country: None (occurrence: None)
  Receive Date: 20060306
  Receipt Date: 20060221
  Transmission Date: 20060701
  Serious: Yes (Other)
  Sender: FDA-Public Use
  Company Number: 2006025865

PATIENT
  Age: 40 Year
  Sex: Female

DRUGS (18)
  1. CELEBREX [Suspect]
     Indication: ARTHRITIS
     Dosage: 400 MG (200 MG, 2 IN 1 D)
     Dates: start: 20040101
  2. GLUCOTROL [Suspect]
     Indication: DIABETES MELLITUS
     Dates: start: 20040101
  3. BEXTRA [Suspect]
     Indication: ARTHRITIS
     Dates: start: 20040101, end: 20040101
  4. ACTOS [Suspect]
     Indication: DIABETES MELLITUS
     Dates: start: 20040101, end: 20040101
  5. LASIX [Suspect]
     Indication: CARDIAC FAILURE CONGESTIVE
     Dates: start: 20060101
  6. HUMULIN 70/30 [Concomitant]
  7. INSULIN, REGULAR (INSULIN) [Concomitant]
  8. NASONEX [Concomitant]
  9. ZYRTEC [Concomitant]
  10. NEXIUM [Concomitant]
  11. ALBUTEROL [Concomitant]
  12. BENICAR [Concomitant]
  13. POTASSIUM (POTASSIUM) [Concomitant]
  14. FOSAMAX [Concomitant]
  15. ALL OTHER THERAPEUTIC PRODUCTS (ALL OTHER THERAPEUTIC PRODUCTS) [Concomitant]
  16. FLEXERIL [Concomitant]
  17. LORTAB [Concomitant]
  18. VITAMIN C (VITAMIN C) [Concomitant]

REACTIONS (16)
  - ARTHRITIS [None]
  - BLOOD CHOLESTEROL INCREASED [None]
  - BLOOD PRESSURE INCREASED [None]
  - CARDIAC DISORDER [None]
  - CARDIAC FAILURE CONGESTIVE [None]
  - CHEST PAIN [None]
  - DIFFICULTY IN WALKING [None]
  - FALL [None]
  - LIGAMENT INJURY [None]
  - OEDEMA PERIPHERAL [None]
  - PLEURAL EFFUSION [None]
  - PNEUMONIA [None]
  - POOR PERIPHERAL CIRCULATION [None]
  - RENAL PAIN [None]
  - UPPER RESPIRATORY TRACT INFECTION [None]
  - WEIGHT INCREASED [None]
